FAERS Safety Report 7293710-2 (Version None)
Quarter: 2011Q1

REPORT INFORMATION
  Report Type: 
  Country: None (occurrence: None)
  Receive Date: 20110215
  Receipt Date: 20110209
  Transmission Date: 20110831
  Serious: Yes (Other)
  Sender: FDA-Public Use
  Company Number: B0699784A

PATIENT
  Age: 25 Year
  Sex: Male

DRUGS (3)
  1. FINLEPSIN [Concomitant]
  2. STILNOX [Concomitant]
  3. AMOXICILLIN AND CLAVULANATE POTASSIUM [Suspect]
     Indication: TOOTH ABSCESS
     Route: 048
     Dates: start: 20110112, end: 20110114

REACTIONS (4)
  - SLEEP DISORDER [None]
  - DIZZINESS [None]
  - PALPITATIONS [None]
  - DIARRHOEA [None]
